FAERS Safety Report 25713821 (Version 1)
Quarter: 2025Q3

REPORT INFORMATION
  Report Type: Spontaneous
  Country: CN (occurrence: CN)
  Receive Date: 20250822
  Receipt Date: 20250822
  Transmission Date: 20251021
  Serious: Yes (Other)
  Sender: ACCORD
  Company Number: CN-Accord-500796

PATIENT
  Age: 36 Year
  Sex: Female

DRUGS (3)
  1. ETOPOSIDE [Suspect]
     Active Substance: ETOPOSIDE
     Indication: Acute myeloid leukaemia
     Dosage: DAY 1-5, 1 CYCLE
     Dates: start: 20230912, end: 20230916
  2. CYTARABINE [Suspect]
     Active Substance: CYTARABINE
     Indication: Acute myeloid leukaemia
     Dosage: DAY 1-5 12
     Dates: start: 20230912, end: 20230916
  3. MITOXANTRONE [Suspect]
     Active Substance: MITOXANTRONE HYDROCHLORIDE
     Indication: Acute myeloid leukaemia
     Dosage: DAY 1 (1 CYCLE) (LIPOSOME)
     Dates: start: 20230912, end: 20230912

REACTIONS (3)
  - Myelosuppression [Recovered/Resolved]
  - Pneumonia staphylococcal [Recovered/Resolved]
  - Staphylococcal skin infection [Recovered/Resolved]

NARRATIVE: CASE EVENT DATE: 20230101
